FAERS Safety Report 17381005 (Version 1)
Quarter: 2020Q1

REPORT INFORMATION
  Report Type: Spontaneous
  Country: US (occurrence: US)
  Receive Date: 20200206
  Receipt Date: 20200206
  Transmission Date: 20200409
  Serious: Yes (Other)
  Sender: FDA-Public Use
  Company Number: US-ABBVIE-19K-163-2769939-00

PATIENT
  Age: 60 Year
  Sex: Female

DRUGS (2)
  1. HUMIRA [Suspect]
     Active Substance: ADALIMUMAB
     Indication: PSORIASIS
     Route: 058
     Dates: end: 201812
  2. HUMIRA [Suspect]
     Active Substance: ADALIMUMAB
     Indication: PSORIASIS
     Route: 058
     Dates: start: 20190502, end: 20190502

REACTIONS (6)
  - Pruritus [Unknown]
  - Tuberculosis [Unknown]
  - Transient ischaemic attack [Unknown]
  - Wrong technique in product usage process [Recovered/Resolved]
  - Device issue [Unknown]
  - Pain of skin [Unknown]

NARRATIVE: CASE EVENT DATE: 20190502
